FAERS Safety Report 7381260-4 (Version None)
Quarter: 2011Q1

REPORT INFORMATION
  Report Type: 
  Country: None (occurrence: None)
  Receive Date: 20110321
  Receipt Date: 20110311
  Transmission Date: 20110831
  Serious: Yes (Hospitalization, Disabling, Other)
  Sender: FDA-Public Use
  Company Number: 2008-188696-NL

PATIENT
  Age: 40 Year
  Sex: Female
  Weight: 68 kg

DRUGS (4)
  1. ALLEGRA [Concomitant]
  2. NUVARING [Suspect]
     Indication: CONTRACEPTION
     Dates: start: 20031101, end: 20041020
  3. IBUPROFEN [Concomitant]
  4. CELEXA [Concomitant]

REACTIONS (17)
  - HYPOPHOSPHATAEMIA [None]
  - UPPER AIRWAY OBSTRUCTION [None]
  - FALL [None]
  - PULMONARY EMBOLISM [None]
  - WEIGHT INCREASED [None]
  - ALLERGIC SINUSITIS [None]
  - RHINITIS [None]
  - PARAESTHESIA [None]
  - TENDONITIS [None]
  - CARPAL TUNNEL SYNDROME [None]
  - VAGINAL INFECTION [None]
  - HYPOAESTHESIA [None]
  - FIBROADENOMA OF BREAST [None]
  - FIBROCYSTIC BREAST DISEASE [None]
  - PULMONARY INFARCTION [None]
  - CHEST PAIN [None]
  - FACTOR V LEIDEN MUTATION [None]
